FAERS Safety Report 8922355 (Version 1)
Quarter: 2012Q4

REPORT INFORMATION
  Report Type: 
  Country: JP (occurrence: JP)
  Receive Date: 20121126
  Receipt Date: 20121126
  Transmission Date: 20130627
  Serious: Yes (Death)
  Sender: FDA-Public Use
  Company Number: JP-GE HEALTHCARE MEDICAL DIAGNOSTICS-MSTR-NO-1211S-0063

PATIENT
  Age: 70 Year
  Sex: Female

DRUGS (5)
  1. METASTRON [Suspect]
     Indication: METASTATIC PAIN
     Dosage: dose not reported
     Route: 042
     Dates: start: 20121107, end: 20121107
  2. METASTRON [Suspect]
     Indication: THERAPEUTIC PROCEDURE
  3. PACLITAXEL W/CARBOPLATIN [Concomitant]
  4. DOCETAXEL [Concomitant]
  5. NAVELBINE [Concomitant]

REACTIONS (2)
  - Disseminated intravascular coagulation [Fatal]
  - Multi-organ failure [Fatal]
